FAERS Safety Report 5622783-5 (Version None)
Quarter: 2008Q1

REPORT INFORMATION
  Report Type: 
  Country: None (occurrence: None)
  Receive Date: 20080212
  Receipt Date: 20080123
  Transmission Date: 20080703
  Serious: No
  Sender: FDA-Public Use
  Company Number: US-BOEHRINGER INGELHEIM GMBH, GERMANY-2008-BP-01097BP

PATIENT
  Age: 90 Year
  Sex: Male

DRUGS (5)
  1. SPIRIVA [Suspect]
     Indication: RESPIRATORY DISORDER
     Dates: start: 20071220
  2. TRELSTAR DEPOT [Suspect]
     Indication: PROSTATE CANCER
     Route: 030
     Dates: start: 20080109, end: 20080109
  3. TRELSTAR DEPOT [Suspect]
     Route: 030
     Dates: start: 20071227, end: 20071227
  4. PROCRIT [Suspect]
     Route: 065
     Dates: start: 20080109
  5. XOPENEX [Suspect]
     Indication: RESPIRATORY DISORDER
     Route: 065
     Dates: start: 20071220

REACTIONS (2)
  - BONE PAIN [None]
  - JOINT SWELLING [None]
